FAERS Safety Report 21255470 (Version 1)
Quarter: 2022Q3

REPORT INFORMATION
  Report Type: Spontaneous
  Country: US (occurrence: US)
  Receive Date: 20220825
  Receipt Date: 20220825
  Transmission Date: 20221027
  Serious: Yes (Hospitalization)
  Sender: FDA-Public Use
  Company Number: US-SUNBUM-2022-US-020128

PATIENT
  Sex: 0

DRUGS (1)
  1. SUN BUM BROAD SPECTRUM SPF 50 [Suspect]
     Active Substance: AVOBENZONE\HOMOSALATE\OCTISALATE\OCTOCRYLENE
     Indication: Therapeutic skin care topical
     Dosage: ACCIDENTAL EYE EXPOSURE

REACTIONS (2)
  - Eye injury [Unknown]
  - Accidental exposure to product [Unknown]
